FAERS Safety Report 10192412 (Version 1)
Quarter: 2014Q2

REPORT INFORMATION
  Report Type: Spontaneous
  Country: US (occurrence: US)
  Receive Date: 20140523
  Receipt Date: 20140523
  Transmission Date: 20141212
  Serious: No
  Sender: FDA-Public Use
  Company Number: US-PFIZER INC-2014139144

PATIENT
  Age: 61 Year
  Sex: Female

DRUGS (4)
  1. ETHINYLESTRADIOL/LEVONORGESTREL [Suspect]
     Dosage: UNK
  2. TRAZODONE [Suspect]
     Dosage: UNK
  3. SULINDAC [Suspect]
     Dosage: UNK
  4. WELLBUTRIN XR [Suspect]
     Dosage: UNK

REACTIONS (2)
  - Drug hypersensitivity [Unknown]
  - Rash [Unknown]
